FAERS Safety Report 23920606 (Version 1)
Quarter: 2024Q2

REPORT INFORMATION
  Report Type: Report from Study
  Country: TR (occurrence: TR)
  Receive Date: 20240530
  Receipt Date: 20240530
  Transmission Date: 20240716
  Serious: Yes (Hospitalization)
  Sender: FDA-Public Use
  Company Number: TR-ABBVIE-5736736

PATIENT
  Sex: Male
  Weight: 75 kg

DRUGS (6)
  1. CARBIDOPA\LEVODOPA [Suspect]
     Active Substance: CARBIDOPA\LEVODOPA
     Indication: Parkinson^s disease
     Dosage: MORNING DOSE (ML): 9.50 CONTINUOUS DOSE (ML): 4.50 EXTRA DOSE (ML): 1.00
     Route: 050
     Dates: start: 20191002, end: 20240507
  2. CARBIDOPA\LEVODOPA [Suspect]
     Active Substance: CARBIDOPA\LEVODOPA
  3. NOVORAPID [Concomitant]
     Active Substance: INSULIN ASPART
     Indication: Diabetes mellitus
     Dosage: 60 IU (INTERNATIONAL UNIT)?FREQUENCY TEXT: 3X20IU
     Route: 058
  4. DOPADEX SR [Concomitant]
     Indication: Parkinson^s disease
     Dosage: 25/100 MG
     Route: 048
  5. CIPRALEX [Concomitant]
     Active Substance: ESCITALOPRAM OXALATE
     Indication: Parkinson^s disease
     Dosage: FORM STRENGTH: 10 MILLIGRAM
     Route: 048
  6. LANTUS [Concomitant]
     Active Substance: INSULIN GLARGINE
     Indication: Diabetes mellitus
     Route: 058

REACTIONS (1)
  - Embedded device [Recovered/Resolved]
